FAERS Safety Report 8420982-0 (Version None)
Quarter: 2012Q2

REPORT INFORMATION
  Report Type: 
  Country: None (occurrence: None)
  Receive Date: 20120608
  Receipt Date: 20120604
  Transmission Date: 20120825
  Serious: Yes (Hospitalization, Other)
  Sender: FDA-Public Use
  Company Number: US-PFIZER INC-2010060969

PATIENT
  Sex: Female

DRUGS (4)
  1. LAMICTAL [Concomitant]
     Indication: BIPOLAR DISORDER
     Dosage: UNK
     Dates: start: 20060101
  2. LAMICTAL [Concomitant]
     Indication: ANXIETY
  3. CHANTIX [Suspect]
     Indication: SMOKING CESSATION THERAPY
     Dosage: STARTER MONTH
     Route: 048
     Dates: start: 20070901, end: 20071201
  4. CHANTIX [Suspect]
     Dosage: REFILLS FOR CONTINUING MONTH PACKS
     Dates: start: 20080401, end: 20080701

REACTIONS (6)
  - SUICIDE ATTEMPT [None]
  - INSOMNIA [None]
  - DEPRESSION [None]
  - PSYCHOTIC DISORDER [None]
  - BIPOLAR DISORDER [None]
  - ANXIETY [None]
